FAERS Safety Report 14575464 (Version 1)
Quarter: 2018Q1

REPORT INFORMATION
  Report Type: Spontaneous
  Country: US (occurrence: US)
  Receive Date: 20180227
  Receipt Date: 20180227
  Transmission Date: 20180509
  Serious: No
  Sender: FDA-Public Use
  Company Number: US-ROCHE-2008986

PATIENT
  Age: 36 Year
  Sex: Female

DRUGS (1)
  1. XOLAIR [Suspect]
     Active Substance: OMALIZUMAB
     Indication: URTICARIA
     Dosage: UNKNOWN
     Route: 065

REACTIONS (4)
  - Pruritus [Recovered/Resolved]
  - Hypersensitivity [Unknown]
  - Heart rate increased [Unknown]
  - Oral pruritus [Recovered/Resolved]

NARRATIVE: CASE EVENT DATE: 20171011
